FAERS Safety Report 16030582 (Version 3)
Quarter: 2019Q2

REPORT INFORMATION
  Report Type: Spontaneous
  Country: US (occurrence: US)
  Receive Date: 20190304
  Receipt Date: 20190408
  Transmission Date: 20190711
  Serious: Yes (Other)
  Sender: FDA-Public Use
  Company Number: US-PFIZER INC-2019088127

PATIENT
  Sex: Female

DRUGS (5)
  1. CARDURA [Suspect]
     Active Substance: DOXAZOSIN MESYLATE
     Dosage: 40 MG, DAILY [40MG / QTY 30 / DAY SUPPLY 30]
  2. CARDURA [Suspect]
     Active Substance: DOXAZOSIN MESYLATE
     Dosage: 20 MG, 1X/DAY (FOR 30 DAYS)
  3. CARDURA [Suspect]
     Active Substance: DOXAZOSIN MESYLATE
     Dosage: 40 MG, 1X/DAY
  4. DOXAZOSIN MESILATE [Suspect]
     Active Substance: DOXAZOSIN MESYLATE
     Dosage: 2 MG, DAILY [2MG / QTY 30 / DAY SUPPLY 30]
  5. DRITHOCREME [Suspect]
     Active Substance: ANTHRALIN
     Dosage: UNK UNK, DAILY

REACTIONS (3)
  - Peripheral swelling [Unknown]
  - Hypertension [Unknown]
  - Headache [Unknown]
